FAERS Safety Report 23913962 (Version 1)
Quarter: 2024Q2

REPORT INFORMATION
  Report Type: Spontaneous
  Country: US (occurrence: US)
  Receive Date: 20240529
  Receipt Date: 20240529
  Transmission Date: 20240716
  Serious: No
  Sender: FDA-Public Use
  Company Number: US-DRL-USA-LIT/USA/24/0007154

PATIENT
  Sex: Female

DRUGS (7)
  1. TERBINAFINE [Suspect]
     Active Substance: TERBINAFINE
     Indication: Trichophytosis
     Dosage: 250 MG/D FOR 2 WEEKS
     Route: 048
  2. FLUCONAZOLE [Suspect]
     Active Substance: FLUCONAZOLE
     Indication: Trichophytosis
     Dosage: 50 MG/WK TO 200 MG/D FOR }20 CUMULATIVE WEEKS),
  3. MOMETASONE [Concomitant]
     Active Substance: MOMETASONE
     Indication: Dermatitis
     Dosage: TOPICAL ME-DIUM-POTENCY  CORTICOSTEROID
  4. ECONAZOLE [Concomitant]
     Active Substance: ECONAZOLE
     Indication: Trichophytosis
     Dosage: TOPICAL  ANTIFUNGAL
  5. PREDNISONE [Concomitant]
     Active Substance: PREDNISONE
     Indication: Dermatitis
  6. DIPHENHYDRAMINE [Concomitant]
     Active Substance: DIPHENHYDRAMINE
     Indication: Trichophytosis
  7. KETOCONAZOLE [Concomitant]
     Active Substance: KETOCONAZOLE
     Indication: Trichophytosis
     Route: 061

REACTIONS (2)
  - Drug ineffective [Unknown]
  - Product use in unapproved indication [Unknown]
